FAERS Safety Report 15367013 (Version 1)
Quarter: 2018Q3

REPORT INFORMATION
  Report Type: Spontaneous
  Country: US (occurrence: US)
  Receive Date: 20180910
  Receipt Date: 20180910
  Transmission Date: 20181010
  Serious: Yes (Life-Threatening, Hospitalization, Other)
  Sender: FDA-Public Use
  Company Number: US-BAYER-2018-164658

PATIENT
  Sex: Female

DRUGS (2)
  1. BAYER ASPIRIN [Suspect]
     Active Substance: ASPIRIN
     Indication: CONTRACEPTION
  2. BAYER ASPIRIN [Suspect]
     Active Substance: ASPIRIN
     Indication: NUTRITIONAL SUPPLEMENTATION
     Dosage: UNK
     Route: 065

REACTIONS (6)
  - Adverse event [Unknown]
  - Toxicity to various agents [Unknown]
  - Hospitalisation [Unknown]
  - Analgesic drug level increased [Unknown]
  - Product use in unapproved indication [Unknown]
  - Thrombosis [Unknown]
